FAERS Safety Report 8120067-7 (Version None)
Quarter: 2012Q1

REPORT INFORMATION
  Report Type: 
  Country: None (occurrence: None)
  Receive Date: 20120203
  Receipt Date: 20120126
  Transmission Date: 20120608
  Serious: Yes (Other)
  Sender: FDA-Public Use
  Company Number: AUR-APL-2012-00671

PATIENT
  Age: 57 Year
  Sex: Male
  Weight: 99.7913 kg

DRUGS (1)
  1. SERTRALINE HYDROCHLORIDE [Suspect]
     Indication: DEPRESSION
     Dosage: 200 MG, 1 D, ORAL
     Route: 048
     Dates: start: 20110301

REACTIONS (6)
  - THROAT IRRITATION [None]
  - PRODUCT COATING ISSUE [None]
  - GASTRIC DISORDER [None]
  - PRODUCT SUBSTITUTION ISSUE [None]
  - DYSPEPSIA [None]
  - WRONG TECHNIQUE IN DRUG USAGE PROCESS [None]
